FAERS Safety Report 12180982 (Version 8)
Quarter: 2018Q2

REPORT INFORMATION
  Report Type: Report from Study
  Country: GB (occurrence: GB)
  Receive Date: 20160315
  Receipt Date: 20180626
  Transmission Date: 20180711
  Serious: Yes (Other)
  Sender: FDA-Public Use
  Company Number: GB-BRISTOL-MYERS SQUIBB COMPANY-BMS-2015-087646

PATIENT
  Sex: Female

DRUGS (1)
  1. ABATACEPT [Suspect]
     Active Substance: ABATACEPT
     Indication: RHEUMATOID ARTHRITIS
     Dosage: 125 MG, QWK
     Route: 058
     Dates: start: 20160413

REACTIONS (6)
  - Foot operation [Unknown]
  - Immune system disorder [Unknown]
  - Pulmonary oedema [Unknown]
  - Drug dose omission [Unknown]
  - Malaise [Unknown]
  - Infection [Recovering/Resolving]
